FAERS Safety Report 8297059-0 (Version None)
Quarter: 2012Q2

REPORT INFORMATION
  Report Type: 
  Country: None (occurrence: None)
  Receive Date: 20120416
  Receipt Date: 20120402
  Transmission Date: 20120825
  Serious: Yes (Other)
  Sender: FDA-Public Use
  Company Number: 2012DE0127

PATIENT
  Age: 62 Year
  Sex: Male

DRUGS (2)
  1. LEFLUNOMIDE [Concomitant]
  2. KINERET [Suspect]
     Indication: RHEUMATOID ARTHRITIS
     Dosage: 100 MG (100 MG, 1 IN 1 D)
     Dates: start: 20030925, end: 20031124

REACTIONS (3)
  - RENAL FAILURE ACUTE [None]
  - LYMPHOPLASMACYTOID LYMPHOMA/IMMUNOCYTOMA [None]
  - HERPES ZOSTER [None]
